FAERS Safety Report 5407342-1 (Version None)
Quarter: 2007Q3

REPORT INFORMATION
  Report Type: 
  Country: None (occurrence: None)
  Receive Date: 20070807
  Receipt Date: 20070727
  Transmission Date: 20080115
  Serious: Yes (Hospitalization)
  Sender: FDA-Public Use
  Company Number: GB-ROCHE-510139

PATIENT
  Sex: Female

DRUGS (1)
  1. GRANISETRON  HCL [Suspect]
     Route: 042
     Dates: start: 20070716, end: 20070716

REACTIONS (5)
  - CHEST DISCOMFORT [None]
  - CHEST PAIN [None]
  - DIZZINESS [None]
  - DYSPNOEA [None]
  - VERTIGO [None]
